FAERS Safety Report 13538554 (Version 1)
Quarter: 2017Q2

REPORT INFORMATION
  Report Type: Spontaneous
  Country: RS (occurrence: RS)
  Receive Date: 20170512
  Receipt Date: 20170512
  Transmission Date: 20170830
  Serious: Yes (Hospitalization, Other)
  Sender: FDA-Public Use
  Company Number: RS-ALEMBIC PHARMACUETICALS LIMITED-2017SCAL000389

PATIENT

DRUGS (1)
  1. LAMOTRIGINE. [Suspect]
     Active Substance: LAMOTRIGINE
     Indication: PRODUCT USED FOR UNKNOWN INDICATION
     Dosage: 2222.2 MG, UNK
     Route: 065

REACTIONS (16)
  - Pneumonia [Unknown]
  - Rhabdomyolysis [Unknown]
  - Electrocardiogram QT prolonged [Unknown]
  - Hypotension [Unknown]
  - Nausea [Unknown]
  - Respiratory failure [Unknown]
  - Acute respiratory distress syndrome [Unknown]
  - Dysarthria [Unknown]
  - Stupor [Unknown]
  - Coma [Unknown]
  - Ataxia [Unknown]
  - Somnolence [Unknown]
  - Tachycardia [Unknown]
  - Intentional overdose [Unknown]
  - Bicytopenia [Unknown]
  - Toxicity to various agents [Unknown]
